FAERS Safety Report 19839917 (Version 1)
Quarter: 2021Q3

REPORT INFORMATION
  Report Type: Other
  Country: US (occurrence: US)
  Receive Date: 20210915
  Receipt Date: 20210915
  Transmission Date: 20211014
  Serious: No
  Sender: FDA-Public Use
  Company Number: US-ROCHE-2825320

PATIENT
  Age: 41 Year
  Sex: Female

DRUGS (7)
  1. ESCITALOPRAM OXALATE. [Concomitant]
     Active Substance: ESCITALOPRAM OXALATE
     Dates: start: 20201203
  2. VITAMIN B COMPLEX [Concomitant]
     Active Substance: CYANOCOBALAMIN\DEXPANTHENOL\NIACINAMIDE\PYRIDOXINE HYDROCHLORIDE\RIBOFLAVIN 5^-PHOSPHATE SODIUM\THIAMINE HYDROCHLORIDE\VITAMIN B COMPLEX
     Indication: PROPHYLAXIS
     Route: 048
  3. CHOLECALCIFEROL [Concomitant]
     Active Substance: CHOLECALCIFEROL
     Dates: start: 20200817
  4. NUVIGIL [Concomitant]
     Active Substance: ARMODAFINIL
     Dates: start: 20210325
  5. ZALEPLON. [Concomitant]
     Active Substance: ZALEPLON
     Dates: start: 20210317
  6. OCRELIZUMAB. [Suspect]
     Active Substance: OCRELIZUMAB
     Indication: MULTIPLE SCLEROSIS
     Route: 042
     Dates: start: 20210422
  7. ATIVAN [Concomitant]
     Active Substance: LORAZEPAM
     Dates: start: 20200731

REACTIONS (3)
  - Oedema peripheral [Recovered/Resolved]
  - Hypotension [Recovering/Resolving]
  - Oral candidiasis [Recovering/Resolving]

NARRATIVE: CASE EVENT DATE: 20210503
